FAERS Safety Report 25427594 (Version 6)
Quarter: 2025Q4

REPORT INFORMATION
  Report Type: Report from Study
  Country: US (occurrence: US)
  Receive Date: 20250612
  Receipt Date: 20251106
  Transmission Date: 20260117
  Serious: Yes (Other)
  Sender: INSMED
  Company Number: US-INSMED, INC.-2025-02151-US

PATIENT
  Sex: Female
  Weight: 58.957 kg

DRUGS (2)
  1. ARIKAYCE [Suspect]
     Active Substance: AMIKACIN
     Indication: Mycobacterium avium complex infection
     Dosage: 590 MILLIGRAM, DAILY
     Route: 055
     Dates: start: 202505
  2. OXYGEN [Concomitant]
     Active Substance: OXYGEN
     Indication: Product used for unknown indication
     Dosage: UNK UNK, UNK
     Route: 055

REACTIONS (9)
  - Oxygen saturation decreased [Unknown]
  - Speech disorder [Not Recovered/Not Resolved]
  - Fungal infection [Not Recovered/Not Resolved]
  - Dysuria [Not Recovered/Not Resolved]
  - Dysphonia [Not Recovered/Not Resolved]
  - Living in residential institution [Not Recovered/Not Resolved]
  - Wrong technique in device usage process [Unknown]
  - Device breakage [Unknown]
  - Drug dose omission by device [Unknown]

NARRATIVE: CASE EVENT DATE: 20250101
